FAERS Safety Report 8413548-X (Version None)
Quarter: 2012Q2

REPORT INFORMATION
  Report Type: 
  Country: None (occurrence: None)
  Receive Date: 20120605
  Receipt Date: 20120530
  Transmission Date: 20120825
  Serious: Yes (Hospitalization, Congenital Anomaly)
  Sender: FDA-Public Use
  Company Number: US-GLAXOSMITHKLINE-A0980087A

PATIENT
  Sex: Male
  Weight: 3.6 kg

DRUGS (3)
  1. PAXIL [Suspect]
     Indication: DEPRESSION
     Route: 064
     Dates: end: 19961001
  2. KLONOPIN [Concomitant]
  3. TRANXENE [Concomitant]
     Dates: end: 19960917

REACTIONS (3)
  - CONGENITAL CHOROID PLEXUS CYST [None]
  - FOETAL EXPOSURE DURING PREGNANCY [None]
  - PYLORIC STENOSIS [None]
